FAERS Safety Report 22267668 (Version 2)
Quarter: 2023Q2

REPORT INFORMATION
  Report Type: Spontaneous
  Country: FR (occurrence: FR)
  Receive Date: 20230430
  Receipt Date: 20230626
  Transmission Date: 20230722
  Serious: Yes (Congenital Anomaly, Other)
  Sender: FDA-Public Use
  Company Number: FR-ViiV Healthcare Limited-FR2023GSK054955

PATIENT
  Age: 38 Week
  Sex: Female
  Weight: 2.7 kg

DRUGS (3)
  1. ABACAVIR [Suspect]
     Active Substance: ABACAVIR
     Indication: HIV infection
     Dosage: UNK
     Route: 065
  2. LAMIVUDINE [Suspect]
     Active Substance: LAMIVUDINE
     Indication: HIV infection
     Dosage: UNK
     Route: 064
  3. DOLUTEGRAVIR [Suspect]
     Active Substance: DOLUTEGRAVIR
     Indication: HIV infection
     Dosage: UNK
     Route: 064

REACTIONS (4)
  - Genetic polymorphism [Unknown]
  - Foetal exposure during pregnancy [Unknown]
  - Live birth [Unknown]
  - Exposure during pregnancy [Unknown]
